FAERS Safety Report 6545640-9 (Version None)
Quarter: 2010Q1

REPORT INFORMATION
  Report Type: 
  Country: None (occurrence: None)
  Receive Date: 20100121
  Receipt Date: 20100118
  Transmission Date: 20100710
  Serious: Yes (Death)
  Sender: FDA-Public Use
  Company Number: US-CELGENEUS-163-21880-09111209

PATIENT
  Sex: Male

DRUGS (2)
  1. REVLIMID [Suspect]
     Route: 048
     Dates: start: 20091026, end: 20090101
  2. REVLIMID [Suspect]
     Route: 048
     Dates: start: 20080801, end: 20080101

REACTIONS (1)
  - NEOPLASM PROGRESSION [None]
